FAERS Safety Report 12592472 (Version 2)
Quarter: 2016Q4

REPORT INFORMATION
  Report Type: Spontaneous
  Country: US (occurrence: US)
  Receive Date: 20160726
  Receipt Date: 20161027
  Transmission Date: 20170207
  Serious: No
  Sender: FDA-Public Use
  Company Number: US-ASTRAZENECA-2016SE73789

PATIENT
  Sex: Female
  Weight: 125.2 kg

DRUGS (3)
  1. FLUID MEDICATION [Concomitant]
     Indication: OEDEMA
  2. ARIMIDEX [Suspect]
     Active Substance: ANASTROZOLE
     Indication: BREAST CANCER FEMALE
     Dosage: UNKNOWN,DAILY
     Route: 048
     Dates: start: 2014
  3. CALCIUM [Concomitant]
     Active Substance: CALCIUM
     Indication: BONE DISORDER

REACTIONS (7)
  - Asthenia [Unknown]
  - Lip exfoliation [Not Recovered/Not Resolved]
  - Activities of daily living impaired [Unknown]
  - Weight increased [Unknown]
  - Bone disorder [Unknown]
  - Oedema peripheral [Not Recovered/Not Resolved]
  - Passive smoking [Unknown]

NARRATIVE: CASE EVENT DATE: 2015
